FAERS Safety Report 19644524 (Version 1)
Quarter: 2021Q3

REPORT INFORMATION
  Report Type: Report from Study
  Country: GB (occurrence: GB)
  Receive Date: 20210802
  Receipt Date: 20210802
  Transmission Date: 20211014
  Serious: Yes (Hospitalization)
  Sender: FDA-Public Use
  Company Number: GB-JNJFOC-20210755801

PATIENT
  Age: 38 Year
  Sex: Male
  Weight: 85 kg

DRUGS (5)
  1. TRIMOVATE [Concomitant]
     Active Substance: CLOBETASONE BUTYRATE\NYSTATIN\OXYTETRACYCLINE CALCIUM
     Dates: start: 20040101
  2. EUCERIN [SALICYLIC ACID] [Concomitant]
     Dates: start: 20010623
  3. DOVOBET [Concomitant]
     Active Substance: BETAMETHASONE\CALCIPOTRIENE
     Dates: start: 20060101
  4. STELARA [Suspect]
     Active Substance: USTEKINUMAB
     Indication: PSORIASIS
     Route: 058
     Dates: start: 20100607
  5. EUMOVATE [Concomitant]
     Active Substance: CLOBETASONE BUTYRATE
     Dates: start: 20050404

REACTIONS (2)
  - Blood creatinine increased [Recovered/Resolved]
  - Chest pain [Recovered/Resolved]

NARRATIVE: CASE EVENT DATE: 20140510
